FAERS Safety Report 6151067-4 (Version None)
Quarter: 2009Q2

REPORT INFORMATION
  Report Type: 
  Country: None (occurrence: None)
  Receive Date: 20090410
  Receipt Date: 20090401
  Transmission Date: 20091009
  Serious: Yes (Death, Hospitalization)
  Sender: FDA-Public Use
  Company Number: US-JNJFOC-20080804587

PATIENT
  Sex: Female
  Weight: 54.43 kg

DRUGS (11)
  1. ORTHO EVRA [Suspect]
     Indication: HORMONE LEVEL ABNORMAL
     Route: 062
  2. ORTHO EVRA [Suspect]
     Indication: DRUG THERAPY
     Route: 062
  3. ORTHO EVRA [Suspect]
     Indication: DEPRESSION
     Route: 062
  4. PSEUDOEPHEDRINE HCL [Concomitant]
  5. LORAZEPAM [Concomitant]
  6. PROZAC [Concomitant]
  7. WELLBUTRIN [Concomitant]
  8. LIBRIUM [Concomitant]
  9. TRAMADOL [Concomitant]
  10. NORDIAZEPAM [Concomitant]
  11. THC [Concomitant]

REACTIONS (3)
  - COMPLETED SUICIDE [None]
  - INTRACRANIAL VENOUS SINUS THROMBOSIS [None]
  - OFF LABEL USE [None]
